FAERS Safety Report 7828370-2 (Version None)
Quarter: 2011Q4

REPORT INFORMATION
  Report Type: 
  Country: None (occurrence: None)
  Receive Date: 20111020
  Receipt Date: 20111018
  Transmission Date: 20120403
  Serious: No
  Sender: FDA-Public Use
  Company Number: US-PFIZER INC-2011219360

PATIENT
  Sex: Female
  Weight: 50 kg

DRUGS (2)
  1. CHANTIX [Suspect]
     Indication: SMOKING CESSATION THERAPY
     Dosage: 0.5 MG, 1X/DAY
     Route: 048
     Dates: start: 20080101, end: 20080101
  2. CHANTIX [Suspect]
     Dosage: UNK
     Route: 048
     Dates: start: 20110903, end: 20110912

REACTIONS (9)
  - FUNGAL INFECTION [None]
  - URINE ANALYSIS ABNORMAL [None]
  - NIGHT SWEATS [None]
  - VOMITING [None]
  - PELVIC DISCOMFORT [None]
  - PAIN [None]
  - NAUSEA [None]
  - FATIGUE [None]
  - ABDOMINAL DISCOMFORT [None]
